FAERS Safety Report 8434714-3 (Version None)
Quarter: 2012Q2

REPORT INFORMATION
  Report Type: 
  Country: None (occurrence: None)
  Receive Date: 20120323
  Receipt Date: 20110928
  Transmission Date: 20120825
  Serious: Yes (Other)
  Sender: FDA-Public Use
  Company Number: 163-21880-11070488

PATIENT
  Age: 72 Year
  Sex: Male
  Weight: 81.6475 kg

DRUGS (10)
  1. LEVOXYL (LEVOTHYROXINE SODIUM) (UNKNOWN) [Concomitant]
  2. COUMADIN [Concomitant]
  3. DEXAMETHASONE [Concomitant]
  4. FLOMAX (TAMSULOSIN HYDROCHLORIDE) (UNKNOWN) [Concomitant]
  5. FINASTERIDE (FINASTERIDE) (UNKNOWN) [Concomitant]
  6. ARANESP (DARBEPOETIN ALFA) (UNKNOWN) [Concomitant]
  7. ZOMETA [Concomitant]
  8. PREDNISONE [Concomitant]
  9. BENADRYL (DIPHENHYDRAMINE HYDROCHLORIDE) (UNKNOWN) [Concomitant]
  10. REVLIMID [Suspect]
     Indication: MULTIPLE MYELOMA
     Dosage: 10 MG, QD X 21 DAYS, OFF 7 DAYS, PO
     Route: 048
     Dates: start: 20110218

REACTIONS (3)
  - GINGIVAL INFECTION [None]
  - ORAL INFECTION [None]
  - THROMBOSIS [None]
